FAERS Safety Report 13066434 (Version 1)
Quarter: 2016Q4

REPORT INFORMATION
  Report Type: Report from Study
  Country: None (occurrence: CA)
  Receive Date: 20161227
  Receipt Date: 20161227
  Transmission Date: 20170207
  Serious: Yes (Hospitalization, Other)
  Sender: FDA-Public Use
  Company Number: CA-ABBVIE-16K-028-1806919-00

PATIENT
  Sex: Male
  Weight: 80 kg

DRUGS (2)
  1. IMURAN [Concomitant]
     Active Substance: AZATHIOPRINE
     Indication: PRODUCT USED FOR UNKNOWN INDICATION
     Route: 048
     Dates: start: 20150917, end: 20160921
  2. HUMIRA [Suspect]
     Active Substance: ADALIMUMAB
     Indication: CROHN^S DISEASE
     Route: 058
     Dates: start: 20150731, end: 201608

REACTIONS (4)
  - Ileal stenosis [Recovered/Resolved]
  - Drug effect incomplete [Not Recovered/Not Resolved]
  - Intestinal fibrosis [Recovered/Resolved]
  - Crohn^s disease [Recovering/Resolving]
